FAERS Safety Report 8598104-5 (Version None)
Quarter: 2012Q3

REPORT INFORMATION
  Report Type: 
  Country: None (occurrence: None)
  Receive Date: 20120816
  Receipt Date: 20120809
  Transmission Date: 20120928
  Serious: No
  Sender: FDA-Public Use
  Company Number: US-B.I. PHARMACEUTICALS,INC./RIDGEFIELD-2012-BP-17998BP

PATIENT
  Sex: Female

DRUGS (13)
  1. SPIRIVA [Suspect]
     Dosage: 18 MCG
     Route: 048
     Dates: start: 20120809, end: 20120809
  2. SINGULAIR [Concomitant]
     Indication: DYSPNOEA
     Dosage: 10 MG
     Route: 048
  3. DICLOFENAC [Concomitant]
     Indication: ARTHRITIS
     Dosage: 75 MG
     Route: 048
  4. HYDROXYZINE [Concomitant]
     Dosage: 25 MG
     Route: 048
  5. PROAIR HFA [Concomitant]
     Indication: ASTHMA
  6. SOMA [Concomitant]
     Indication: MUSCLE SPASMS
     Route: 048
  7. PERCOCET [Concomitant]
     Indication: PAIN
     Route: 048
  8. SIMVASTATIN [Concomitant]
     Indication: BLOOD CHOLESTEROL INCREASED
     Dosage: 40 MG
     Route: 048
  9. SPIRIVA [Suspect]
     Indication: CHRONIC OBSTRUCTIVE PULMONARY DISEASE
     Dosage: 18 MCG
     Route: 055
     Dates: start: 20120701
  10. HYDROCHLOROTHIAZIDE [Concomitant]
     Indication: HYPERTENSION
     Dosage: 50 MG
     Route: 048
  11. NEXIUM [Concomitant]
     Indication: ULCER
     Dosage: 40 MG
     Route: 048
  12. PREDNISONE TAB [Concomitant]
     Indication: DYSPNOEA
     Route: 048
  13. VITAMIN D [Concomitant]
     Indication: BONE DISORDER
     Dosage: 2000 U
     Route: 048

REACTIONS (1)
  - INCORRECT ROUTE OF DRUG ADMINISTRATION [None]
